FAERS Safety Report 25630635 (Version 1)
Quarter: 2025Q3

REPORT INFORMATION
  Report Type: Spontaneous
  Country: GB (occurrence: GB)
  Receive Date: 20250801
  Receipt Date: 20250801
  Transmission Date: 20251020
  Serious: Yes (Hospitalization, Other)
  Sender: AUROBINDO
  Company Number: GB-MHRA-MED-202507221902374350-DJMBK

PATIENT
  Sex: Male
  Weight: 110 kg

DRUGS (1)
  1. CIPROFLOXACIN [Suspect]
     Active Substance: CIPROFLOXACIN
     Indication: Prostatitis
     Dosage: 500 MILLIGRAM, TWO TIMES A DAY (500MG TWICE DAILY)
     Route: 065

REACTIONS (2)
  - Seizure [Recovered/Resolved]
  - Medication error [Unknown]
